FAERS Safety Report 7150346-1 (Version None)
Quarter: 2010Q4

REPORT INFORMATION
  Report Type: 
  Country: None (occurrence: None)
  Receive Date: 20101123
  Receipt Date: 20101015
  Transmission Date: 20110411
  Serious: No
  Sender: FDA-Public Use
  Company Number: 020504

PATIENT
  Sex: Female
  Weight: 65.8 kg

DRUGS (8)
  1. CIMZIA [Suspect]
     Indication: ANKYLOSING SPONDYLITIS
     Dosage: 200 MG  1X/2 WEEKS; SUBCUTANEOUS
     Route: 058
     Dates: start: 20100901
  2. CIMZIA [Suspect]
     Indication: CROHN'S DISEASE
     Dosage: 200 MG  1X/2 WEEKS; SUBCUTANEOUS
     Route: 058
     Dates: start: 20100901
  3. CIMZIA [Suspect]
     Indication: OFF LABEL USE
     Dosage: 200 MG  1X/2 WEEKS; SUBCUTANEOUS
     Route: 058
     Dates: start: 20100901
  4. DEXLANSOPRAZOLE [Concomitant]
  5. TYLENOL (CAPLET) [Concomitant]
  6. LOVAZA [Concomitant]
  7. VITAMIN D [Concomitant]
  8. IRON [Concomitant]

REACTIONS (5)
  - ARTHRALGIA [None]
  - BACK PAIN [None]
  - FATIGUE [None]
  - INFLUENZA LIKE ILLNESS [None]
  - PAIN [None]
